FAERS Safety Report 6557332-0 (Version None)
Quarter: 2010Q1

REPORT INFORMATION
  Report Type: 
  Country: None (occurrence: None)
  Receive Date: 20100129
  Receipt Date: 20100122
  Transmission Date: 20100710
  Serious: Yes (Other)
  Sender: FDA-Public Use
  Company Number: CA-TEVA-222154USA

PATIENT
  Age: 61 Year
  Sex: Male

DRUGS (4)
  1. METOPROLOL TARTRATE TABLETS USP 50MG + 100MG [Suspect]
     Route: 048
     Dates: start: 20091214
  2. WARFARIN SODIUM [Concomitant]
     Route: 048
  3. ATORVASTATIN CALCIUM [Concomitant]
     Route: 048
  4. ACETYLSALICYLIC ACID [Concomitant]
     Route: 048

REACTIONS (9)
  - AMNESIA [None]
  - CONVULSION [None]
  - DIZZINESS [None]
  - DYSPNOEA [None]
  - LOSS OF CONSCIOUSNESS [None]
  - PERIPHERAL COLDNESS [None]
  - SKIN LACERATION [None]
  - SYNCOPE [None]
  - TREMOR [None]
